FAERS Safety Report 10638556 (Version 2)
Quarter: 2015Q1

REPORT INFORMATION
  Report Type: Spontaneous
  Country: US (occurrence: US)
  Receive Date: 20141208
  Receipt Date: 20150116
  Transmission Date: 20150720
  Serious: Yes (Other)
  Sender: FDA-Public Use
  Company Number: US-TEVA-527310USA

PATIENT
  Age: 28 Year
  Sex: Female
  Weight: 66.4 kg

DRUGS (3)
  1. PARAGARD T 380A [Suspect]
     Active Substance: COPPER
     Route: 015
     Dates: start: 20141203
  2. PARAGARD T 380A [Suspect]
     Active Substance: COPPER
     Indication: CONTRACEPTION
     Route: 063
     Dates: start: 20141030, end: 20141203
  3. SERTRALINE [Concomitant]
     Active Substance: SERTRALINE HYDROCHLORIDE
     Indication: POSTPARTUM DEPRESSION

REACTIONS (3)
  - Device dislocation [Recovered/Resolved]
  - Exposure during breast feeding [Unknown]
  - Discomfort [Unknown]

NARRATIVE: CASE EVENT DATE: 20141128
